FAERS Safety Report 5689774-X (Version None)
Quarter: 2008Q1

REPORT INFORMATION
  Report Type: 
  Country: None (occurrence: None)
  Receive Date: 20080328
  Receipt Date: 20080312
  Transmission Date: 20080703
  Serious: Yes (Life-Threatening)
  Sender: FDA-Public Use
  Company Number: 2008US000802

PATIENT
  Age: 51 Year
  Sex: Female

DRUGS (11)
  1. AMBISOME [Suspect]
     Indication: CANDIDIASIS
     Dosage: 300 MG, UID/QD, IV NOS
     Route: 042
     Dates: start: 20080214, end: 20080218
  2. VALPROATE SODIUM [Concomitant]
  3. VALPROIC ACID [Concomitant]
  4. PANTOPRAZOLE SODIUM [Concomitant]
  5. THIOPENTAL SODIUM [Concomitant]
  6. DOMPERIDONE (DOMPERIDONE) [Concomitant]
  7. SUCRALFATE [Concomitant]
  8. TOPIRAMATE [Concomitant]
  9. PARACETAMOL [Concomitant]
  10. LINEZOLID [Concomitant]
  11. MIDAZOLAM HCL [Concomitant]

REACTIONS (2)
  - CARDIAC FAILURE [None]
  - HYPERKALAEMIA [None]
